FAERS Safety Report 4602497-0 (Version None)
Quarter: 2005Q1

REPORT INFORMATION
  Report Type: 
  Country: None (occurrence: None)
  Receive Date: 20050307
  Receipt Date: 20050218
  Transmission Date: 20050727
  Serious: Yes (Other)
  Sender: FDA-Public Use
  Company Number: 2004109080

PATIENT
  Age: 47 Year
  Sex: Male

DRUGS (3)
  1. CELEBREX [Suspect]
     Indication: ARTHRALGIA
     Dosage: 200 MG (200 MG, PRN), ORAL
     Route: 048
     Dates: start: 20020521, end: 20041122
  2. LIPITOR [Suspect]
     Indication: ILL-DEFINED DISORDER
     Dosage: 20 MG (20 MG, 1 IN 1 D)
     Dates: start: 19970820
  3. PYRIDOXINE HCL [Concomitant]

REACTIONS (4)
  - DEEP VEIN THROMBOSIS [None]
  - KNEE OPERATION [None]
  - POSTOPERATIVE THROMBOSIS [None]
  - THROMBOPHLEBITIS SUPERFICIAL [None]
